FAERS Safety Report 12480659 (Version 3)
Quarter: 2016Q4

REPORT INFORMATION
  Report Type: Spontaneous
  Country: US (occurrence: US)
  Receive Date: 20160620
  Receipt Date: 20161110
  Transmission Date: 20170207
  Serious: No
  Sender: FDA-Public Use
  Company Number: US-GLAXOSMITHKLINE-US2016086615

PATIENT
  Age: 79 Year
  Sex: Female

DRUGS (2)
  1. VOLTAREN [Suspect]
     Active Substance: DICLOFENAC SODIUM
     Indication: SPINAL DEFORMITY
     Dosage: UNK
     Route: 061
     Dates: start: 2015
  2. VOLTAREN [Suspect]
     Active Substance: DICLOFENAC SODIUM
     Dosage: UNK

REACTIONS (6)
  - Incorrect dosage administered [Unknown]
  - Product quality issue [Unknown]
  - Off label use [Unknown]
  - Drug administered at inappropriate site [Unknown]
  - Circumstance or information capable of leading to medication error [Unknown]
  - Drug administration error [Unknown]
